FAERS Safety Report 14809029 (Version 4)
Quarter: 2018Q2

REPORT INFORMATION
  Report Type: Report from Study
  Country: CR (occurrence: CR)
  Receive Date: 20180425
  Receipt Date: 20180621
  Transmission Date: 20180711
  Serious: Yes (Hospitalization)
  Sender: FDA-Public Use
  Company Number: PHHY2018CR073122

PATIENT
  Age: 76 Year
  Sex: Male
  Weight: 74 kg

DRUGS (1)
  1. SANDOSTATIN LAR DEPOT [Suspect]
     Active Substance: OCTREOTIDE ACETATE
     Indication: ACROMEGALY
     Dosage: UNK
     Route: 065
     Dates: start: 2004, end: 20180514

REACTIONS (8)
  - Pain [Recovering/Resolving]
  - Head banging [Recovering/Resolving]
  - Gait disturbance [Recovering/Resolving]
  - Wound [Unknown]
  - Fall [Unknown]
  - Movement disorder [Unknown]
  - Dizziness [Unknown]
  - Hip fracture [Recovering/Resolving]

NARRATIVE: CASE EVENT DATE: 20180411
